FAERS Safety Report 6420017-5 (Version None)
Quarter: 2009Q4

REPORT INFORMATION
  Report Type: 
  Country: None (occurrence: None)
  Receive Date: 20091029
  Receipt Date: 20081124
  Transmission Date: 20100525
  Serious: Yes (Other)
  Sender: FDA-Public Use
  Company Number: A0753297A

PATIENT
  Age: 18 Year
  Sex: Female

DRUGS (2)
  1. IMITREX [Suspect]
     Indication: MIGRAINE
     Dosage: 2SPR SINGLE DOSE
     Route: 045
     Dates: start: 20081020, end: 20081020
  2. YAZ [Concomitant]

REACTIONS (8)
  - DRY EYE [None]
  - EYE INFLAMMATION [None]
  - EYE IRRITATION [None]
  - EYE PAIN [None]
  - HYPERACUSIS [None]
  - THROAT IRRITATION [None]
  - VISION BLURRED [None]
  - VISUAL ACUITY REDUCED [None]
